FAERS Safety Report 8283774-1 (Version None)
Quarter: 2012Q2

REPORT INFORMATION
  Report Type: 
  Country: None (occurrence: None)
  Receive Date: 20120413
  Receipt Date: 20120110
  Transmission Date: 20120825
  Serious: No
  Sender: FDA-Public Use
  Company Number: US-ASTRAZENECA-2011SE70917

PATIENT
  Age: 78 Year
  Sex: Female

DRUGS (3)
  1. NEXIUM [Suspect]
     Route: 048
  2. NEXIUM IV [Suspect]
     Dosage: THREE PER DAY
     Route: 042
  3. NEXIUM [Suspect]
     Route: 048

REACTIONS (3)
  - STRESS [None]
  - GASTRIC ULCER [None]
  - OFF LABEL USE [None]
